FAERS Safety Report 4845918-0 (Version None)
Quarter: 2005Q4

REPORT INFORMATION
  Report Type: 
  Country: None (occurrence: None)
  Receive Date: 20051201
  Receipt Date: 20051122
  Transmission Date: 20060501
  Serious: Yes (Death)
  Sender: FDA-Public Use
  Company Number: 2005-11-1386

PATIENT
  Age: 43 Year
  Sex: Male
  Weight: 73 kg

DRUGS (2)
  1. PEG-INTRON [Suspect]
     Indication: HEPATITIS C
     Dosage: 100 MCG QW SUBCUTANEOUS
     Route: 058
     Dates: start: 20050427, end: 20051118
  2. REBETOL [Suspect]
     Indication: HEPATITIS C
     Dosage: 800 MG PO ORAL
     Route: 048
     Dates: start: 20050427, end: 20051118

REACTIONS (2)
  - CARDIAC FAILURE ACUTE [None]
  - INSOMNIA [None]
